FAERS Safety Report 8534893-3 (Version None)
Quarter: 2012Q3

REPORT INFORMATION
  Report Type: 
  Country: None (occurrence: None)
  Receive Date: 20120724
  Receipt Date: 20081007
  Transmission Date: 20120928
  Serious: Yes (Other)
  Sender: FDA-Public Use
  Company Number: TR-ROCHE-1090946

PATIENT
  Sex: Male

DRUGS (1)
  1. XOLAIR [Suspect]
     Indication: ASTHMA
     Dates: start: 20080718

REACTIONS (4)
  - HYPERSENSITIVITY [None]
  - UPPER RESPIRATORY TRACT CONGESTION [None]
  - SINUSITIS [None]
  - NO THERAPEUTIC RESPONSE [None]
